FAERS Safety Report 17834769 (Version 1)
Quarter: 2020Q2

REPORT INFORMATION
  Report Type: Spontaneous
  Country: US (occurrence: US)
  Receive Date: 20200528
  Receipt Date: 20200528
  Transmission Date: 20200714
  Serious: No
  Sender: FDA-Public Use
  Company Number: US-SUNOVION-2020SUN001564

PATIENT

DRUGS (2)
  1. LATUDA [Suspect]
     Active Substance: LURASIDONE HYDROCHLORIDE
     Dosage: 20 MG UP TO 40 MG
     Route: 064
  2. LATUDA [Suspect]
     Active Substance: LURASIDONE HYDROCHLORIDE
     Dosage: 20 MG UP TO 40 MG
     Route: 063

REACTIONS (5)
  - Tremor [Recovered/Resolved]
  - Withdrawal syndrome [Unknown]
  - Musculoskeletal stiffness [Recovered/Resolved]
  - Foetal exposure during pregnancy [Unknown]
  - Exposure via breast milk [Unknown]
